FAERS Safety Report 9759755 (Version 2)
Quarter: 2013Q4

REPORT INFORMATION
  Report Type: Spontaneous
  Country: US (occurrence: US)
  Receive Date: 20131216
  Receipt Date: 20131216
  Transmission Date: 20140711
  Serious: No
  Sender: FDA-Public Use
  Company Number: US-GILEAD-2010-0029014

PATIENT
  Age: 69 Year
  Sex: 0
  Weight: 106.59 kg

DRUGS (22)
  1. LETAIRIS [Suspect]
     Indication: PULMONARY ARTERIAL HYPERTENSION
     Route: 048
     Dates: start: 20090226
  2. MUCINEX [Concomitant]
  3. XOPENEX [Concomitant]
  4. TYLENOL PM EX-STR [Concomitant]
  5. POTASSIUM CHLORIDE [Concomitant]
  6. HCTZ [Concomitant]
  7. NEXIUM [Concomitant]
  8. ATACAND [Concomitant]
  9. NOVOLIN [Concomitant]
  10. LASIX [Concomitant]
  11. CLONIDINE [Concomitant]
  12. ALLOPURINOL [Concomitant]
  13. RESTASIS [Concomitant]
  14. PREDNISONE [Concomitant]
  15. CELLCEPT [Concomitant]
  16. ADCIRCA [Concomitant]
  17. CHROMIUM PICO [Concomitant]
  18. VITAMIN D [Concomitant]
  19. MEGA [Concomitant]
  20. LEVEMIR [Concomitant]
  21. GERITOL [Concomitant]
  22. OXYGEN [Concomitant]

REACTIONS (8)
  - Muscle spasms [Unknown]
  - Visual impairment [Unknown]
  - Hearing impaired [Unknown]
  - Myalgia [Unknown]
  - Pain in extremity [Unknown]
  - Headache [Unknown]
  - Abdominal discomfort [Unknown]
  - Rash [Unknown]
